FAERS Safety Report 7370498-8 (Version None)
Quarter: 2011Q1

REPORT INFORMATION
  Report Type: 
  Country: None (occurrence: None)
  Receive Date: 20110314
  Receipt Date: 20110301
  Transmission Date: 20110831
  Serious: Yes (Life-Threatening)
  Sender: FDA-Public Use
  Company Number: EU-2011-10015

PATIENT
  Age: 76 Year
  Sex: Male

DRUGS (13)
  1. ASPIRIN [Concomitant]
  2. FENTANYL [Concomitant]
  3. AMLODIPINE [Concomitant]
  4. RANITIDINE [Concomitant]
  5. DIPYRIDAMOLE [Concomitant]
  6. PARACETAMOL (PARACETAMOL) [Concomitant]
  7. AMITRIPTYLINE HYDROCHLORIDE [Concomitant]
  8. ISOSORBIDE MONONITRATE [Concomitant]
  9. METOCLOPRAMIDE [Concomitant]
  10. SIMVASTATIN [Concomitant]
  11. LANSOPRAZOLE [Concomitant]
  12. GABAPENTIN [Concomitant]
  13. SAMSCA [Suspect]
     Indication: HYPONATRAEMIA
     Dosage: 15 MG MILLIGRAM(S), SINGLE, ORAL
     Route: 048
     Dates: start: 20101209, end: 20101210

REACTIONS (2)
  - BLOOD SODIUM INCREASED [None]
  - RAPID CORRECTION OF HYPONATRAEMIA [None]
